FAERS Safety Report 6027214-1 (Version None)
Quarter: 2008Q4

REPORT INFORMATION
  Report Type: 
  Country: None (occurrence: None)
  Receive Date: 20081231
  Receipt Date: 20081231
  Transmission Date: 20090506
  Serious: Yes (Hospitalization)
  Sender: FDA-Public Use
  Company Number: None

PATIENT
  Sex: Male
  Weight: 58.9676 kg

DRUGS (1)
  1. RASBURICASE 1.5MG VIAL [Suspect]
     Indication: TUMOUR LYSIS SYNDROME
     Dosage: 6 MG ONCE IV BOLUS
     Route: 040
     Dates: start: 20081006, end: 20081006

REACTIONS (5)
  - BLOOD METHAEMOGLOBIN PRESENT [None]
  - BLOOD PH INCREASED [None]
  - OXYGEN SATURATION DECREASED [None]
  - TACHYPNOEA [None]
  - VENOUS OXYGEN SATURATION DECREASED [None]
